FAERS Safety Report 6575507-1 (Version None)
Quarter: 2010Q1

REPORT INFORMATION
  Report Type: 
  Country: None (occurrence: None)
  Receive Date: 20100209
  Receipt Date: 20100201
  Transmission Date: 20100710
  Serious: Yes (Other)
  Sender: FDA-Public Use
  Company Number: GR-JNJFOC-20100201467

PATIENT
  Sex: Female

DRUGS (2)
  1. GYNO-DAKTARIN [Suspect]
     Route: 067
  2. GYNO-DAKTARIN [Suspect]
     Indication: FUNGAL INFECTION
     Dosage: EVERY NIGHT
     Route: 067

REACTIONS (2)
  - DYSPNOEA [None]
  - TACHYCARDIA [None]
